FAERS Safety Report 7866360-4 (Version None)
Quarter: 2011Q4

REPORT INFORMATION
  Report Type: 
  Country: None (occurrence: None)
  Receive Date: 20111028
  Receipt Date: 20110603
  Transmission Date: 20120403
  Serious: Yes (Hospitalization)
  Sender: FDA-Public Use
  Company Number: US-GLAXOSMITHKLINE-A0930182A

PATIENT
  Sex: Female

DRUGS (1)
  1. ADVAIR DISKUS 100/50 [Suspect]
     Indication: LUNG NEOPLASM MALIGNANT
     Dosage: 1SPR TWICE PER DAY
     Route: 055
     Dates: start: 20010101

REACTIONS (1)
  - PNEUMONIA [None]
